FAERS Safety Report 8992168 (Version 1)
Quarter: 2012Q4

REPORT INFORMATION
  Report Type: Report from Study
  Country: CA (occurrence: CA)
  Receive Date: 20121231
  Receipt Date: 20121231
  Transmission Date: 20130627
  Serious: Yes (Hospitalization, Other)
  Sender: FDA-Public Use
  Company Number: CA-ROCHE-1172604

PATIENT
  Age: 68 Year
  Sex: Male
  Weight: 90.1 kg

DRUGS (2)
  1. OMALIZUMAB [Suspect]
     Indication: ASTHMA
     Dosage: 375 mg, Q2W
     Route: 058
     Dates: start: 20061004
  2. OMALIZUMAB [Suspect]
     Route: 058

REACTIONS (33)
  - Pneumonia [Unknown]
  - Respiratory distress [Unknown]
  - Pleural effusion [Unknown]
  - Bronchitis [Recovering/Resolving]
  - Osteoarthritis [Unknown]
  - Erythema [Unknown]
  - Immune system disorder [Unknown]
  - Pseudomonas infection [Unknown]
  - Lung infection [Not Recovered/Not Resolved]
  - Joint destruction [Unknown]
  - Oedema peripheral [Unknown]
  - Infarction [Unknown]
  - Breath sounds abnormal [Unknown]
  - Rhonchi [Not Recovered/Not Resolved]
  - Influenza [Unknown]
  - Pulmonary congestion [Unknown]
  - Decreased activity [Unknown]
  - Intermittent claudication [Unknown]
  - Feeling hot [Unknown]
  - Gait disturbance [Not Recovered/Not Resolved]
  - Generalised oedema [Unknown]
  - Blood immunoglobulin E decreased [Unknown]
  - Hot flush [Unknown]
  - Secretion discharge [Unknown]
  - Lacrimation increased [Unknown]
  - Wheezing [Unknown]
  - Cough [Not Recovered/Not Resolved]
  - Oedema peripheral [Unknown]
  - Fatigue [Unknown]
  - Rales [Unknown]
  - Dyspnoea [Not Recovered/Not Resolved]
  - Dyspnoea exertional [Recovered/Resolved]
  - Respiratory tract infection fungal [Unknown]
